FAERS Safety Report 15654293 (Version 1)
Quarter: 2018Q4

REPORT INFORMATION
  Report Type: Spontaneous
  Country: US (occurrence: US)
  Receive Date: 20181125
  Receipt Date: 20181125
  Transmission Date: 20190205
  Serious: Yes (Life-Threatening, Hospitalization)
  Sender: FDA-Public Use
  Company Number: US-JNJFOC-20181118698

PATIENT
  Sex: Male
  Weight: .89 kg

DRUGS (5)
  1. PARACETAMOL [Suspect]
     Active Substance: ACETAMINOPHEN
     Indication: PRODUCT USED FOR UNKNOWN INDICATION
     Route: 064
  2. PHENCYCLIDINE [Suspect]
     Active Substance: PHENCYCLIDINE
     Indication: PRODUCT USED FOR UNKNOWN INDICATION
     Route: 064
  3. OXYCODONE [Suspect]
     Active Substance: OXYCODONE
     Indication: PRODUCT USED FOR UNKNOWN INDICATION
     Route: 064
  4. METHADONE [Suspect]
     Active Substance: METHADONE HYDROCHLORIDE
     Indication: PRODUCT USED FOR UNKNOWN INDICATION
     Route: 064
  5. PARACETAMOL [Suspect]
     Active Substance: ACETAMINOPHEN
     Route: 064

REACTIONS (9)
  - Premature baby [Unknown]
  - Pulmonary oedema [Recovered/Resolved]
  - Toxicity to various agents [Recovering/Resolving]
  - Immature respiratory system [Recovering/Resolving]
  - Acidosis [Recovering/Resolving]
  - Transaminases increased [Recovering/Resolving]
  - Foetal exposure during pregnancy [Unknown]
  - Sedation [Recovering/Resolving]
  - Apgar score low [Recovering/Resolving]
